FAERS Safety Report 8863544 (Version 1)
Quarter: 2012Q4

REPORT INFORMATION
  Report Type: 
  Country: US (occurrence: US)
  Receive Date: 20121024
  Receipt Date: 20121024
  Transmission Date: 20130627
  Serious: No
  Sender: FDA-Public Use
  Company Number: US-AMGEN-USASP2011063117

PATIENT
  Age: 65 Year
  Sex: Male
  Weight: 90.7 kg

DRUGS (7)
  1. ENBREL [Suspect]
     Indication: PRODUCT USED FOR UNKNOWN INDICATION
     Dosage: 25 mg, UNK
     Route: 058
  2. MULTIVITAMIN                       /00097801/ [Concomitant]
  3. OMEGA 3                            /01334101/ [Concomitant]
  4. ASPIRIN [Concomitant]
  5. VITAMIN D /00107901/ [Concomitant]
  6. LOSARTAN POTASSIUM [Concomitant]
  7. HYDROCHLOROTHIAZIDE W/TRIAMTERENE [Concomitant]

REACTIONS (1)
  - Injection site discolouration [Unknown]
